FAERS Safety Report 11186252 (Version 1)
Quarter: 2015Q2

REPORT INFORMATION
  Report Type: Spontaneous
  Country: CA (occurrence: CA)
  Receive Date: 20150612
  Receipt Date: 20150612
  Transmission Date: 20150821
  Serious: Yes (Hospitalization, Other)
  Sender: FDA-Public Use
  Company Number: CA-B.I. PHARMACEUTICALS,INC./RIDGEFIELD-2015-BI-30616CN

PATIENT
  Age: 89 Year
  Sex: Male
  Weight: 5 kg

DRUGS (1)
  1. FLOMAX [Suspect]
     Active Substance: TAMSULOSIN HYDROCHLORIDE
     Indication: MICTURITION DISORDER
     Dosage: 0.4 MG
     Route: 065

REACTIONS (3)
  - Testicular oedema [Recovered/Resolved]
  - Penis disorder [Recovered/Resolved]
  - Dysuria [Recovered/Resolved]
